FAERS Safety Report 9620053 (Version 2)
Quarter: 2013Q4

REPORT INFORMATION
  Report Type: Spontaneous
  Country: JP (occurrence: JP)
  Receive Date: 20131014
  Receipt Date: 20131224
  Transmission Date: 20140711
  Serious: Yes (Hospitalization, Other)
  Sender: FDA-Public Use
  Company Number: CHPA2013JP015507

PATIENT
  Age: 69 Year
  Sex: Male
  Weight: 48 kg

DRUGS (14)
  1. PURSENNID [Suspect]
     Indication: CONSTIPATION
     Dosage: 24 MG, QD
     Route: 048
     Dates: start: 20130823, end: 20130903
  2. LOXONIN [Concomitant]
     Indication: LUMBAR HERNIA
     Dosage: 180 MG, UNK
     Route: 048
     Dates: start: 20100517, end: 20130903
  3. SELBEX [Concomitant]
     Indication: LUMBAR HERNIA
     Dosage: 150 MG, UNK
     Route: 048
     Dates: start: 20100517, end: 20130903
  4. TAMSULOSIN HYDROCHLORIDE [Concomitant]
     Indication: HYPERTONIC BLADDER
     Dosage: 0.2 MG, UNK
     Route: 048
     Dates: start: 201303, end: 20130903
  5. PRIMPERAN [Concomitant]
     Indication: VOMITING
     Dosage: UNK
     Route: 048
     Dates: start: 20110330, end: 20130903
  6. MAGMITT [Concomitant]
     Indication: CONSTIPATION
     Dosage: 660 MG, UNK
     Route: 048
     Dates: start: 20070727, end: 20130903
  7. POLYFUL [Concomitant]
     Indication: GASTRITIS
     Dosage: 3000 MG, UNK
     Route: 048
     Dates: start: 20040723
  8. TAKEPRON [Concomitant]
     Indication: GASTRITIS
     Dosage: 15 MG, UNK
     Route: 048
     Dates: start: 20040723
  9. AMLODIN [Concomitant]
     Indication: HYPERTENSION
     Dosage: 5 MG, UNK
     Route: 048
     Dates: start: 20081114, end: 20130920
  10. SOLANAX [Concomitant]
     Indication: NEUROSIS
     Dosage: 1.2 MG, UNK
     Route: 048
     Dates: start: 20040928, end: 20131003
  11. HIBON [Concomitant]
     Indication: GLOSSITIS
     Dosage: UNK
     Route: 048
     Dates: start: 20121010, end: 20130903
  12. SESDEN [Concomitant]
     Indication: GASTRITIS
     Dosage: UNK
     Route: 048
     Dates: start: 20050712, end: 20130903
  13. HIRNAMIN//LEVOMEPROMAZINE MALEATE [Concomitant]
     Indication: NEUROSIS
     Dosage: 5 MG, UNK
     Route: 048
     Dates: start: 20130123, end: 20130903
  14. MYSLEE [Concomitant]
     Indication: NEUROSIS
     Dosage: 10 MG, UNK
     Route: 048
     Dates: start: 20040727, end: 20131003

REACTIONS (5)
  - Liver disorder [Recovering/Resolving]
  - Jaundice [Recovering/Resolving]
  - Hepatic enzyme increased [Recovering/Resolving]
  - Blood bilirubin increased [Recovering/Resolving]
  - Pruritus [Recovered/Resolved]
